FAERS Safety Report 8571743-3 (Version None)
Quarter: 2012Q3

REPORT INFORMATION
  Report Type: 
  Country: None (occurrence: None)
  Receive Date: 20120806
  Receipt Date: 20120802
  Transmission Date: 20120928
  Serious: Yes (Death)
  Sender: FDA-Public Use
  Company Number: PHEH2012US015214

PATIENT
  Sex: Male

DRUGS (1)
  1. AFINITOR [Suspect]
     Indication: METASTASES TO LIVER
     Dosage: 10 MG, DAILY
     Route: 048
     Dates: start: 20110927

REACTIONS (1)
  - DEATH [None]
